FAERS Safety Report 14537294 (Version 3)
Quarter: 2018Q1

REPORT INFORMATION
  Report Type: Spontaneous
  Country: US (occurrence: US)
  Receive Date: 20180215
  Receipt Date: 20180321
  Transmission Date: 20180509
  Serious: Yes (Other)
  Sender: FDA-Public Use
  Company Number: US-LUNDBECK-DKLU2043944

PATIENT
  Age: 53 Year
  Sex: Female

DRUGS (5)
  1. NORTHERA [Suspect]
     Active Substance: DROXIDOPA
     Indication: ORTHOSTATIC HYPOTENSION
  2. BOTOX [Concomitant]
     Active Substance: ONABOTULINUMTOXINA
     Indication: MIGRAINE
     Route: 065
  3. NORTHERA [Suspect]
     Active Substance: DROXIDOPA
     Indication: AUTONOMIC NEUROPATHY
     Dosage: SCHEDULE C; TITRATING
     Route: 065
     Dates: start: 20180131, end: 20180204
  4. NORTHERA [Suspect]
     Active Substance: DROXIDOPA
     Indication: DIZZINESS
  5. NORTHERA [Suspect]
     Active Substance: DROXIDOPA
     Indication: SYNCOPE

REACTIONS (14)
  - Fine motor skill dysfunction [Unknown]
  - Atrial fibrillation [Unknown]
  - Headache [Unknown]
  - Tachycardia [Recovered/Resolved]
  - Ventricular extrasystoles [Unknown]
  - Drug dose omission [Unknown]
  - Muscle spasms [Recovered/Resolved]
  - Heart rate irregular [Recovered/Resolved]
  - Confusional state [Recovered/Resolved]
  - Blood pressure fluctuation [Unknown]
  - Pain in extremity [Unknown]
  - Nausea [Unknown]
  - Blood pressure orthostatic decreased [Recovered/Resolved]
  - Muscle tightness [Recovered/Resolved]

NARRATIVE: CASE EVENT DATE: 20180203
